FAERS Safety Report 5099173-X (Version None)
Quarter: 2006Q3

REPORT INFORMATION
  Report Type: 
  Country: None (occurrence: None)
  Receive Date: 20060728
  Receipt Date: 20060504
  Transmission Date: 20061208
  Serious: No
  Sender: FDA-Public Use
  Company Number: COT_0579_2006

PATIENT
  Age: 23 Year
  Sex: Female
  Weight: 44.6339 kg

DRUGS (5)
  1. VENTAVIS [Suspect]
     Indication: PULMONARY HYPERTENSION
     Dosage: 2.5 MCG ONCE IH
     Route: 055
     Dates: start: 20060504, end: 20060504
  2. VENTAVIS [Suspect]
     Indication: PULMONARY HYPERTENSION
     Dosage: 5 MCG ONCE IH
     Route: 055
     Dates: start: 20060504, end: 20060504
  3. LANOXIN [Concomitant]
  4. SPIRONOLACTONE [Concomitant]
  5. SILDENAFIL [Concomitant]

REACTIONS (6)
  - CHEST DISCOMFORT [None]
  - DIZZINESS [None]
  - FATIGUE [None]
  - FLUSHING [None]
  - HYPOTENSION [None]
  - NAUSEA [None]
